FAERS Safety Report 11157640 (Version 2)
Quarter: 2016Q1

REPORT INFORMATION
  Report Type: Spontaneous
  Country: GB (occurrence: GB)
  Receive Date: 20150603
  Receipt Date: 20160309
  Transmission Date: 20160525
  Serious: Yes (Disabling, Other)
  Sender: FDA-Public Use
  Company Number: GB-AUROBINDO-AUR-APL-2015-04763

PATIENT
  Age: 49 Year
  Sex: Female

DRUGS (4)
  1. FLUOXETINE [Suspect]
     Active Substance: FLUOXETINE HYDROCHLORIDE
     Indication: PRODUCT USED FOR UNKNOWN INDICATION
     Dosage: 20 MG, ONCE A DAY
     Route: 048
  2. ALLI [Suspect]
     Active Substance: ORLISTAT
     Indication: PRODUCT USED FOR UNKNOWN INDICATION
     Dosage: 1 DF, 3 TIMES A DAY
     Route: 048
  3. MELOXICAM. [Concomitant]
     Active Substance: MELOXICAM
     Indication: PRODUCT USED FOR UNKNOWN INDICATION
     Dosage: UNK
     Route: 065
  4. PREMPAK                            /00445901/ [Suspect]
     Active Substance: ESTROGENS, CONJUGATED\LEVONORGESTREL
     Indication: PRODUCT USED FOR UNKNOWN INDICATION
     Dosage: 1 DF, ONCE A DAY
     Route: 048

REACTIONS (5)
  - Depression [Unknown]
  - Menopausal symptoms [Unknown]
  - Crying [Unknown]
  - Depressed mood [Unknown]
  - Hot flush [Unknown]
